FAERS Safety Report 10083266 (Version 1)
Quarter: 2014Q2

REPORT INFORMATION
  Report Type: Spontaneous
  Country: US (occurrence: None)
  Receive Date: 20140416
  Receipt Date: 20140416
  Transmission Date: 20141212
  Serious: No
  Sender: FDA-Public Use
  Company Number: None

PATIENT
  Sex: 0
  Weight: 63.5 kg

DRUGS (1)
  1. TOPAMAX [Suspect]
     Indication: CONVULSION
     Dosage: 50 MG DAILY ORALLY
     Dates: start: 201108, end: 201109

REACTIONS (3)
  - Convulsion [None]
  - Depression [None]
  - Hair colour changes [None]
